FAERS Safety Report 20660410 (Version 1)
Quarter: 2022Q1

REPORT INFORMATION
  Report Type: Report from Study
  Country: CA (occurrence: CA)
  Receive Date: 20220331
  Receipt Date: 20220331
  Transmission Date: 20220423
  Serious: Yes (Other)
  Sender: FDA-Public Use
  Company Number: CA-NOVARTISPH-NVSC2021CA255952

PATIENT
  Sex: Female

DRUGS (3)
  1. HYRIMOZ [Suspect]
     Active Substance: ADALIMUMAB-ADAZ
     Indication: Rheumatoid arthritis
     Dosage: 40 MG
     Route: 058
     Dates: start: 20211021
  2. HYDROXYCHLOROQUINE [Concomitant]
     Active Substance: HYDROXYCHLOROQUINE
     Indication: Product used for unknown indication
     Dosage: UNK
     Route: 065
  3. PREDNISONE [Concomitant]
     Active Substance: PREDNISONE
     Indication: Product used for unknown indication
     Dosage: UNK
     Route: 065

REACTIONS (15)
  - Rectal haemorrhage [Unknown]
  - Fatigue [Unknown]
  - Hypoaesthesia oral [Recovered/Resolved]
  - Diarrhoea [Unknown]
  - Malaise [Unknown]
  - Mouth swelling [Unknown]
  - Anorectal discomfort [Unknown]
  - Dizziness [Unknown]
  - Swelling face [Unknown]
  - Head discomfort [Unknown]
  - Adverse drug reaction [Unknown]
  - Drug hypersensitivity [Unknown]
  - Pain [Recovered/Resolved]
  - Nausea [Unknown]
  - Headache [Unknown]
